FAERS Safety Report 4374513-5 (Version None)
Quarter: 2004Q2

REPORT INFORMATION
  Report Type: 
  Country: None (occurrence: None)
  Receive Date: 20040602
  Receipt Date: 20040225
  Transmission Date: 20050107
  Serious: No
  Sender: FDA-Public Use
  Company Number: 200413439BWH

PATIENT
  Sex: Male

DRUGS (1)
  1. LEVITRA [Suspect]
     Dosage: NI, NI; ORAL
     Route: 048

REACTIONS (3)
  - PARAESTHESIA [None]
  - URINARY HESITATION [None]
  - URINARY INCONTINENCE [None]
